FAERS Safety Report 9523261 (Version 1)
Quarter: 2013Q3

REPORT INFORMATION
  Report Type: Spontaneous
  Country: US (occurrence: US)
  Receive Date: 20130913
  Receipt Date: 20130913
  Transmission Date: 20140515
  Serious: Yes (Other)
  Sender: FDA-Public Use
  Company Number: US-PFIZER INC-2013262857

PATIENT
  Sex: Female

DRUGS (2)
  1. NEURONTIN [Suspect]
     Indication: ANXIETY
     Dosage: 500 MG, UNK
     Dates: start: 2011
  2. NEURONTIN [Suspect]
     Indication: AFFECTIVE DISORDER
     Dosage: 300 MG, UNK

REACTIONS (13)
  - Off label use [Unknown]
  - Hyperthyroidism [Unknown]
  - Autoimmune thyroiditis [Unknown]
  - Weight increased [Unknown]
  - Hypothyroidism [Unknown]
  - Face oedema [Unknown]
  - Fluid retention [Unknown]
  - Synovial cyst [Unknown]
  - Skin disorder [Unknown]
  - Goitre [Unknown]
  - Weight decreased [Unknown]
  - Disturbance in attention [Unknown]
  - Increased appetite [Unknown]
